FAERS Safety Report 9911628 (Version 1)
Quarter: 2014Q1

REPORT INFORMATION
  Report Type: Spontaneous
  Country: NZ (occurrence: NZ)
  Receive Date: 20140219
  Receipt Date: 20140219
  Transmission Date: 20141002
  Serious: Yes (Hospitalization, Other)
  Sender: FDA-Public Use
  Company Number: PHHY2014NZ016723

PATIENT
  Age: 73 Year
  Sex: Male

DRUGS (6)
  1. FLUOXETINE [Suspect]
  2. WARFARIN [Suspect]
  3. CANDESARTAN [Concomitant]
  4. METOPROLOL [Concomitant]
  5. SIMVASTATIN [Concomitant]
  6. EZETIMIBE [Concomitant]

REACTIONS (7)
  - Spinal subdural haematoma [Unknown]
  - Diplegia [Unknown]
  - Paraesthesia [Unknown]
  - Back pain [Unknown]
  - Areflexia [Unknown]
  - Anal sphincter atony [Unknown]
  - Urinary retention [Unknown]
